FAERS Safety Report 11487997 (Version 1)
Quarter: 2015Q3

REPORT INFORMATION
  Report Type: Spontaneous
  Country: US (occurrence: US)
  Receive Date: 20150909
  Receipt Date: 20150909
  Transmission Date: 20151125
  Serious: No
  Sender: FDA-Public Use
  Company Number: US-JAZZ-2015-US-001543

PATIENT
  Sex: Female

DRUGS (2)
  1. XYREM [Suspect]
     Active Substance: SODIUM OXYBATE
     Indication: NARCOLEPSY
     Dosage: 2.25 G, BID
     Route: 048
     Dates: start: 201501, end: 2015
  2. XYREM [Suspect]
     Active Substance: SODIUM OXYBATE
     Indication: CATAPLEXY
     Dosage: UNKNOWN DOSE
     Route: 048
     Dates: start: 2015, end: 2015

REACTIONS (11)
  - Vertigo [Unknown]
  - Impaired work ability [Unknown]
  - Mental impairment [Recovered/Resolved]
  - Mental status changes [Recovered/Resolved]
  - Agitation [Unknown]
  - Cold sweat [Unknown]
  - Tremor [Unknown]
  - Unevaluable event [Unknown]
  - Abnormal behaviour [Recovered/Resolved]
  - Nausea [Unknown]
  - Diarrhoea [Unknown]
